FAERS Safety Report 4663903-9 (Version None)
Quarter: 2005Q2

REPORT INFORMATION
  Report Type: 
  Country: None (occurrence: None)
  Receive Date: 20050511
  Receipt Date: 20050406
  Transmission Date: 20051028
  Serious: Yes (Other)
  Sender: FDA-Public Use
  Company Number: 381036

PATIENT
  Age: 32 Year
  Sex: Female
  Weight: 55 kg

DRUGS (4)
  1. PEGASYS [Suspect]
     Indication: HEPATITIS C
     Dosage: 180 MCG 1 PER WEEK SUBCUTANEOUS
     Route: 058
     Dates: start: 20040619
  2. RIBAVIRIN [Suspect]
     Indication: HEPATITIS C
     Dosage: 1000 MG DAILY ORAL
     Route: 048
     Dates: start: 20040619, end: 20040917
  3. ZOLOFT [Concomitant]
  4. DOXEPIN HCL [Concomitant]

REACTIONS (11)
  - ALOPECIA [None]
  - ARTHRALGIA [None]
  - ECZEMA [None]
  - FATIGUE [None]
  - HEART RATE INCREASED [None]
  - HYPOTHYROIDISM [None]
  - PSORIASIS [None]
  - RETINAL EXUDATES [None]
  - THYROIDITIS [None]
  - VISION BLURRED [None]
  - WEIGHT DECREASED [None]
